FAERS Safety Report 7989030-0 (Version None)
Quarter: 2011Q4

REPORT INFORMATION
  Report Type: 
  Country: None (occurrence: None)
  Receive Date: 20111215
  Receipt Date: 20111215
  Transmission Date: 20120403
  Serious: Yes (Hospitalization, Other)
  Sender: FDA-Public Use
  Company Number: None

PATIENT
  Age: 70 Year
  Sex: Male
  Weight: 146.3 kg

DRUGS (2)
  1. SIMVASTATIN [Suspect]
     Indication: HYPERLIPIDAEMIA
     Dosage: 20 MG EVERY DAY PO
     Route: 048
     Dates: start: 20091203, end: 20110909
  2. LISINOPRIL [Suspect]
     Indication: HYPERTENSION
     Dosage: 5 MG BID PO
     Route: 048
     Dates: start: 20110610, end: 20110909

REACTIONS (4)
  - RENAL TUBULAR ACIDOSIS [None]
  - CONDITION AGGRAVATED [None]
  - HYPERKALAEMIA [None]
  - RHABDOMYOLYSIS [None]
